FAERS Safety Report 9354290 (Version 1)
Quarter: 2013Q2

REPORT INFORMATION
  Report Type: Spontaneous
  Country: US (occurrence: US)
  Receive Date: 20130618
  Receipt Date: 20130618
  Transmission Date: 20140414
  Serious: No
  Sender: FDA-Public Use
  Company Number: US-COVIDIEN/TYCO HEALTHCARE/MALLINCKRODT-T201204402

PATIENT
  Age: 60 Year
  Sex: 0

DRUGS (2)
  1. ULTRATAG RBC [Suspect]
     Indication: RADIOISOTOPE SCAN
  2. ULTRA-TECHNEKOW DTE GENERATOR [Concomitant]
     Indication: GASTROINTESTINAL HAEMORRHAGE

REACTIONS (1)
  - Drug ineffective [Unknown]
